FAERS Safety Report 9729158 (Version 4)
Quarter: 2014Q1

REPORT INFORMATION
  Report Type: Report from Study
  Country: NL (occurrence: NL)
  Receive Date: 20131204
  Receipt Date: 20140220
  Transmission Date: 20141002
  Serious: Yes (Death, Hospitalization)
  Sender: FDA-Public Use
  Company Number: NL-SA-CLOF-1002401

PATIENT
  Age: 17 Year
  Sex: Female
  Weight: 62.7 kg

DRUGS (61)
  1. EVOLTRA [Suspect]
     Indication: ACUTE LYMPHOCYTIC LEUKAEMIA RECURRENT
     Dosage: 64 MG 5X
     Route: 042
     Dates: start: 20121002, end: 20121105
  2. ETOPOSIDE [Suspect]
     Indication: ACUTE LYMPHOCYTIC LEUKAEMIA RECURRENT
     Dosage: 160 MG X5
     Route: 042
     Dates: start: 20121002, end: 20121105
  3. CYCLOPHOSPHAMIDE [Suspect]
     Indication: ACUTE LYMPHOCYTIC LEUKAEMIA RECURRENT
     Dosage: 700 MG 5X
     Route: 042
     Dates: start: 20121002, end: 20121105
  4. MICROGYNON [Suspect]
     Indication: MENSTRUAL DISORDER
     Dosage: UNK, 1 TABLET
     Route: 065
     Dates: start: 20121101
  5. HEPARIN [Suspect]
     Indication: FLUSHING
     Dosage: 300 IU, QD
     Route: 065
     Dates: start: 20121101
  6. CALCICHEW [Suspect]
     Indication: BLOOD ELECTROLYTES ABNORMAL
     Dosage: 4000 MG, QD
     Route: 065
     Dates: start: 20121103
  7. CALCICHEW [Suspect]
     Indication: UNEVALUABLE EVENT
     Dosage: 4000 MG, QD
     Route: 065
     Dates: start: 20121103
  8. ORGAMETRIL [Suspect]
     Indication: MENSTRUAL DISORDER
     Dosage: 5 MG, QD
     Route: 065
     Dates: start: 20121107, end: 20121111
  9. KCL [Suspect]
     Indication: BLOOD ELECTROLYTES ABNORMAL
     Dosage: 60 MMOL, QD
     Route: 065
     Dates: start: 20121111, end: 20121115
  10. KCL [Suspect]
     Indication: BLOOD ELECTROLYTES ABNORMAL
     Dosage: 120 MMOL, QD
     Route: 065
     Dates: start: 20121115
  11. POTASSIUM PHOSPHATE MONOBASIC/SODIUM PHOSPHATE [Suspect]
     Indication: BLOOD ELECTROLYTES ABNORMAL
     Dosage: 70 MMOL, QD
     Route: 065
     Dates: start: 20121112
  12. TRAMAL [Suspect]
     Indication: PAIN
     Dosage: 260 MG, QD
     Route: 065
     Dates: start: 20121112, end: 20121112
  13. TRAMAL [Suspect]
     Indication: PAIN
     Dosage: 520 MG, QD
     Route: 065
     Dates: start: 20121113, end: 20121116
  14. TRAMAL [Suspect]
     Indication: PAIN
     Dosage: 260 MG, QD
     Route: 065
     Dates: start: 20121116
  15. PARACETAMOL [Suspect]
     Indication: PAIN
     Dosage: 4000 MG, QD
     Route: 065
     Dates: start: 20121112
  16. MAGNESIUM SULFATE [Suspect]
     Indication: BLOOD ELECTROLYTES ABNORMAL
     Dosage: 24 MMOL, QD
     Route: 065
     Dates: start: 20121115
  17. MAGNESIUM SULFATE [Suspect]
     Indication: MUCOSAL INFLAMMATION
     Dosage: 24 MMOL, QD
     Route: 065
     Dates: start: 20121115
  18. TAVEGIL [Concomitant]
     Indication: TRANSFUSION
     Dosage: 1.5 MG, QD
     Route: 065
     Dates: start: 20121112, end: 20121114
  19. ACICLOVIR [Concomitant]
     Indication: SKIN LESION
     Dosage: 300 MG, TID
     Route: 042
     Dates: start: 20121112, end: 20121116
  20. CIPROFLOXACIN [Concomitant]
     Indication: PROPHYLAXIS
     Dosage: 500 MG, BID
     Route: 042
     Dates: start: 20121112, end: 20121113
  21. CIPROFLOXACIN [Concomitant]
     Indication: PROPHYLAXIS
     Dosage: 500 MG, BID
     Route: 048
     Dates: start: 20121113
  22. SULFAMETHOXAZOLE/TRIMETHOPRIM [Concomitant]
     Indication: PROPHYLAXIS
     Dosage: 480 MG, BID
     Route: 048
     Dates: start: 20121112
  23. HYDROCORTISONE [Concomitant]
     Indication: STRESS
     Dosage: 100 MG, QD
     Route: 042
     Dates: start: 20121112, end: 20121113
  24. IMMUNOGLOBULIN HUMAN NORMAL [Concomitant]
     Indication: PRODUCT USED FOR UNKNOWN INDICATION
     Dosage: 2000 MG, QD
     Route: 042
     Dates: start: 20121114, end: 20121115
  25. CYCLOKAPRON [Concomitant]
     Indication: HAEMORRHAGE
     Dosage: 3000 MG, UNK
     Route: 065
     Dates: start: 20121009, end: 20121009
  26. DIAZEPAM [Concomitant]
     Indication: PRODUCT USED FOR UNKNOWN INDICATION
     Dosage: 20 MG, UNK
     Route: 065
     Dates: start: 20121020, end: 20121022
  27. MICROGYNON [Concomitant]
     Indication: MENSTRUAL DISORDER
     Dosage: 1 DF, UNK
     Route: 065
  28. BACTRIMEL [Concomitant]
     Indication: PRODUCT USED FOR UNKNOWN INDICATION
     Dosage: 400 MG, UNK
     Route: 065
     Dates: start: 20121008, end: 20121011
  29. BACTRIMEL [Concomitant]
     Indication: PRODUCT USED FOR UNKNOWN INDICATION
     Dosage: 570 MG, UNK
     Route: 065
     Dates: start: 20121012, end: 20121015
  30. CALCIUM CARBONATE [Concomitant]
     Indication: BLOOD CALCIUM DECREASED
     Dosage: 1000 MG, UNK
     Route: 065
     Dates: start: 20121022, end: 20121022
  31. CALCIUM CARBONATE [Concomitant]
     Indication: BLOOD CALCIUM DECREASED
     Dosage: 3000 MG, UNK
     Route: 065
     Dates: start: 20121023, end: 20121023
  32. CALCIUM CARBONATE [Concomitant]
     Indication: BLOOD CALCIUM DECREASED
     Dosage: 4500 MG, UNK
     Route: 065
     Dates: start: 20121024, end: 20121024
  33. CALCIUM CARBONATE [Concomitant]
     Indication: BLOOD CALCIUM DECREASED
     Dosage: 1500 MG, UNK
     Route: 065
     Dates: start: 20121026, end: 20121106
  34. CALCIUM GLUCONATE [Concomitant]
     Indication: BLOOD CALCIUM DECREASED
     Dosage: 23000 MCMOL, UNK DOSE:23000 UNKNOWN
     Route: 065
     Dates: start: 20121020, end: 20121021
  35. CALCIUM GLUCONATE [Concomitant]
     Indication: BLOOD CALCIUM DECREASED
     Dosage: 11500 MCMOL, UNK
     Route: 065
     Dates: start: 20121022, end: 20121022
  36. CIPROFLOXACIN [Concomitant]
     Indication: PRODUCT USED FOR UNKNOWN INDICATION
     Dosage: 00 MG, UNK
     Route: 065
     Dates: start: 20121008, end: 20121012
  37. CIPROFLOXACIN [Concomitant]
     Indication: PRODUCT USED FOR UNKNOWN INDICATION
     Dosage: 1000 MG, UNK
     Route: 065
     Dates: start: 20121015, end: 20121023
  38. SULFAMETHOXAZOLE/TRIMETHOPRIM [Concomitant]
     Indication: PRODUCT USED FOR UNKNOWN INDICATION
     Dosage: 960 MG, UNK
     Route: 065
     Dates: start: 20121003, end: 20121008
  39. SULFAMETHOXAZOLE/TRIMETHOPRIM [Concomitant]
     Indication: PRODUCT USED FOR UNKNOWN INDICATION
     Dosage: 1140 MG, UNK
     Route: 065
     Dates: start: 20121011, end: 20121012
  40. SULFAMETHOXAZOLE/TRIMETHOPRIM [Concomitant]
     Indication: PRODUCT USED FOR UNKNOWN INDICATION
     Dosage: 960 MG, UNK
     Route: 065
     Dates: start: 20121015, end: 20121106
  41. DEXAMETHASONE [Concomitant]
     Indication: NAUSEA
     Dosage: 8 MG, UNK
     Route: 065
     Dates: start: 20121002, end: 20121007
  42. DIAZEPAM [Concomitant]
     Dosage: 20 MG, UNK
     Route: 065
     Dates: start: 20121004, end: 20121007
  43. DOMPERIDONE MALEATE [Concomitant]
     Indication: NAUSEA
     Dosage: 40 MG, UNK
     Route: 065
     Dates: start: 20121004, end: 20121007
  44. DOMPERIDONE MALEATE [Concomitant]
     Indication: NAUSEA
     Dosage: 120 MG, UNK
     Route: 065
     Dates: start: 20121007, end: 20121020
  45. CALCIUM PHOSPHATE [Concomitant]
     Indication: BLOOD PHOSPHORUS DECREASED
     Dosage: 78 MMOL, UNK
     Route: 065
     Dates: start: 20121011, end: 20121011
  46. CALCIUM PHOSPHATE [Concomitant]
     Indication: BLOOD PHOSPHORUS DECREASED
     Dosage: 76 MMOL, UNK
     Route: 065
     Dates: start: 20121011, end: 20121012
  47. CALCIUM PHOSPHATE [Concomitant]
     Indication: BLOOD PHOSPHORUS DECREASED
     Dosage: 96 MMOL, UNK
     Route: 065
     Dates: start: 20121022, end: 20121024
  48. HEPARIN-FRACTION, CALCIUM SALT [Concomitant]
     Dosage: 2700 IU, UNK
     Route: 065
     Dates: start: 20121012, end: 20121013
  49. HEPARIN-FRACTION, CALCIUM SALT [Concomitant]
     Dosage: 5400 IU, UNK
     Route: 065
     Dates: start: 20121022, end: 20121022
  50. POTASSIUM CHLORIDE [Concomitant]
     Indication: BLOOD POTASSIUM DECREASED
     Dosage: UNK
     Route: 065
     Dates: start: 20121020, end: 20121024
  51. MAGNESIUM SULFATE [Concomitant]
     Indication: BLOOD MAGNESIUM DECREASED
     Dosage: UNK
     Route: 065
     Dates: start: 20121021, end: 20121025
  52. ESOMEPRAZOLE MAGNESIUM [Concomitant]
     Indication: DYSPEPSIA
     Dosage: 20 MG, UNK
     Route: 065
     Dates: start: 20121006, end: 20121026
  53. NYSTATIN [Concomitant]
     Dosage: UNK
     Route: 065
     Dates: start: 20121002, end: 20121003
  54. PARACETAMOL [Concomitant]
     Indication: PAIN
     Dosage: UNK
     Route: 065
     Dates: start: 20121002, end: 20121026
  55. PARACETAMOL [Concomitant]
     Indication: PYREXIA
     Dosage: UNK
     Route: 065
     Dates: start: 20121002, end: 20121026
  56. DIAZEPAM [Concomitant]
     Dosage: 20 MG, UNK
     Route: 065
     Dates: start: 20121007, end: 20121012
  57. DIAZEPAM [Concomitant]
     Dosage: 20 MG, UNK
     Route: 065
     Dates: start: 20121022, end: 20121023
  58. TRAMADOL HYDROCHLORIDE [Concomitant]
     Indication: PAIN
     Dosage: UNK
     Route: 065
     Dates: start: 20121008, end: 20121024
  59. ITRACONAZOLE [Concomitant]
     Dosage: UNK
     Route: 065
     Dates: start: 20121003, end: 20121026
  60. ONDANSETRON [Concomitant]
     Indication: ANTIEMETIC SUPPORTIVE CARE
     Dosage: 16 MG, UNK
     Route: 065
     Dates: start: 20121002, end: 20121024
  61. AMPHOTERICIN B [Concomitant]
     Dosage: 185 MG, QD
     Route: 042
     Dates: start: 20121127

REACTIONS (10)
  - Multi-organ failure [Fatal]
  - Bone marrow failure [Recovered/Resolved]
  - Staphylococcus test positive [Recovered/Resolved]
  - Staphylococcal infection [Recovered/Resolved]
  - Streptococcal sepsis [Recovered/Resolved]
  - BK virus infection [Not Recovered/Not Resolved]
  - Staphylococcal infection [Recovered/Resolved]
  - Pyrexia [Recovered/Resolved]
  - Herpes virus infection [Recovered/Resolved]
  - Mucosal inflammation [Recovered/Resolved]
